FAERS Safety Report 10138036 (Version 1)
Quarter: 2014Q2

REPORT INFORMATION
  Report Type: Spontaneous
  Country: US (occurrence: None)
  Receive Date: 20140425
  Receipt Date: 20140425
  Transmission Date: 20141212
  Serious: Yes (Hospitalization)
  Sender: FDA-Public Use
  Company Number: UTC-047421

PATIENT
  Age: 81 Year
  Sex: Male
  Weight: 63.5 kg

DRUGS (2)
  1. REMODULIN [Suspect]
     Indication: COR PULMONALE CHRONIC
     Dosage: 8.64 UG/KG (0.006 UG/KG 1 IN 1 MIN) SUBCUTANEOUS
     Route: 058
     Dates: start: 20140322
  2. LETAIRIS (AMBRISENTAN) [Concomitant]

REACTIONS (8)
  - Gastrointestinal infection [None]
  - Gastritis [None]
  - Vomiting [None]
  - Nasal congestion [None]
  - Chest discomfort [None]
  - Headache [None]
  - Dyspnoea exertional [None]
  - Nausea [None]
